FAERS Safety Report 12172765 (Version 2)
Quarter: 2016Q1

REPORT INFORMATION
  Report Type: Other
  Country: DE (occurrence: DE)
  Receive Date: 20160311
  Receipt Date: 20160330
  Transmission Date: 20160526
  Serious: Yes (Hospitalization)
  Sender: FDA-Public Use
  Company Number: DE-MYLANLABS-2016M1010068

PATIENT

DRUGS (2)
  1. OMEPRAZOLE. [Suspect]
     Active Substance: OMEPRAZOLE
     Dosage: ??
  2. PANTOPRAZOLE [Suspect]
     Active Substance: PANTOPRAZOLE SODIUM
     Indication: GASTROOESOPHAGEAL REFLUX DISEASE
     Dosage: 40 MG, QD (DAILY DOSE: 40 MG MILLIGRAM(S) EVERY DAY)
     Route: 048
     Dates: start: 2011

REACTIONS (8)
  - Headache [Unknown]
  - Visual impairment [Not Recovered/Not Resolved]
  - Tunnel vision [Unknown]
  - Photophobia [Unknown]
  - Dizziness [Unknown]
  - Vision blurred [Unknown]
  - Night blindness [Unknown]
  - Sleep disorder [Unknown]

NARRATIVE: CASE EVENT DATE: 2012
